FAERS Safety Report 20617014 (Version 1)
Quarter: 2022Q1

REPORT INFORMATION
  Report Type: Spontaneous
  Country: SE (occurrence: SE)
  Receive Date: 20220321
  Receipt Date: 20220321
  Transmission Date: 20220424
  Serious: Yes (Hospitalization)
  Sender: FDA-Public Use
  Company Number: SE-STRIDES ARCOLAB LIMITED-2022SP002805

PATIENT
  Age: 25 Year
  Sex: Male

DRUGS (44)
  1. DIAZEPAM [Suspect]
     Active Substance: DIAZEPAM
     Indication: Anxiety
     Dosage: UNK (DAILY)
     Route: 065
  2. DIAZEPAM [Suspect]
     Active Substance: DIAZEPAM
     Indication: Intentional self-injury
     Dosage: UNK (PERIODIC)
     Route: 065
  3. DIAZEPAM [Suspect]
     Active Substance: DIAZEPAM
     Indication: Agitation
  4. HALOPERIDOL [Suspect]
     Active Substance: HALOPERIDOL
     Indication: Schizophrenia
     Dosage: UNK (UPTO 10 MG/D)
     Route: 065
     Dates: start: 2015
  5. HALOPERIDOL [Suspect]
     Active Substance: HALOPERIDOL
     Dosage: UNK
     Route: 065
     Dates: start: 2018
  6. HALOPERIDOL [Suspect]
     Active Substance: HALOPERIDOL
     Dosage: UNK
     Route: 065
     Dates: start: 2020
  7. HALOPERIDOL [Suspect]
     Active Substance: HALOPERIDOL
     Dosage: 7.5 MILLIGRAM PER DAY
     Route: 030
  8. HALOPERIDOL [Suspect]
     Active Substance: HALOPERIDOL
     Dosage: 7.5 MILLIGRAM PER DAY
     Route: 065
  9. HALOPERIDOL [Suspect]
     Active Substance: HALOPERIDOL
     Dosage: UNK (TAPER WAS INITIATED ON DAY 9)
     Route: 065
  10. HALOPERIDOL [Suspect]
     Active Substance: HALOPERIDOL
     Dosage: UNK (DOWN-TITRATED AND DISCONTINUED OVER 2 WEEKS)
     Route: 065
  11. CLONAZEPAM [Suspect]
     Active Substance: CLONAZEPAM
     Indication: Anxiety
     Dosage: UNK (PERIODIC)
     Route: 065
  12. CLONAZEPAM [Suspect]
     Active Substance: CLONAZEPAM
     Indication: Intentional self-injury
     Dosage: UNK
     Route: 065
  13. CLONAZEPAM [Suspect]
     Active Substance: CLONAZEPAM
     Indication: Agitation
  14. OLANZAPINE [Suspect]
     Active Substance: OLANZAPINE
     Indication: Schizophrenia
     Dosage: UNK (UP TO 30 MG/D)
     Route: 065
     Dates: start: 2018
  15. OLANZAPINE [Suspect]
     Active Substance: OLANZAPINE
     Dosage: UNK, PRN (7.5-15 MG DURING EXACERBATIONS)
     Route: 065
  16. OLANZAPINE [Suspect]
     Active Substance: OLANZAPINE
     Dosage: UNK (DOWN-TITRATED AND EVENTUALLY STOPPED COMPLETELY ON DAY 14)
     Route: 065
  17. RISPERIDONE [Suspect]
     Active Substance: RISPERIDONE
     Indication: Schizophrenia
     Dosage: 6 MILLIGRAM PER DAY
     Route: 065
     Dates: start: 2015, end: 2016
  18. RISPERIDONE [Suspect]
     Active Substance: RISPERIDONE
     Dosage: 6 MILLIGRAM PER DAY
     Route: 048
  19. CARIPRAZINE [Suspect]
     Active Substance: CARIPRAZINE
     Indication: Schizophrenia
     Dosage: 1.5 MILLIGRAM/DAY
     Route: 065
     Dates: start: 2020, end: 2020
  20. CARIPRAZINE [Suspect]
     Active Substance: CARIPRAZINE
     Dosage: UNK, INCREASING TARGET DOSE OF 6 MG/D
     Route: 065
  21. CARIPRAZINE [Suspect]
     Active Substance: CARIPRAZINE
     Dosage: 4.5 MILLIGRAM/DAILY (DOSE DECREASED)
     Route: 065
  22. CARIPRAZINE [Suspect]
     Active Substance: CARIPRAZINE
     Dosage: 6 MILLIGRAM (DOSE INCREASED)
     Route: 065
  23. CARIPRAZINE [Suspect]
     Active Substance: CARIPRAZINE
     Dosage: 4.5 MILLIGRAM
     Route: 065
  24. OXAZEPAM [Suspect]
     Active Substance: OXAZEPAM
     Indication: Anxiety
     Dosage: UNK (PERIODIC)
     Route: 065
  25. OXAZEPAM [Suspect]
     Active Substance: OXAZEPAM
     Indication: Intentional self-injury
  26. OXAZEPAM [Suspect]
     Active Substance: OXAZEPAM
     Indication: Agitation
  27. LORAZEPAM [Suspect]
     Active Substance: LORAZEPAM
     Indication: Anxiety
     Dosage: UNK (PERIODIC)
     Route: 065
  28. LORAZEPAM [Suspect]
     Active Substance: LORAZEPAM
     Indication: Intentional self-injury
  29. LORAZEPAM [Suspect]
     Active Substance: LORAZEPAM
     Indication: Agitation
  30. QUETIAPINE [Suspect]
     Active Substance: QUETIAPINE
     Indication: Schizophrenia
     Dosage: 900 MILLIGRAM PER DAY
     Route: 065
     Dates: start: 2017
  31. QUETIAPINE [Suspect]
     Active Substance: QUETIAPINE
     Indication: Anxiety
     Dosage: UNK
     Route: 065
  32. QUETIAPINE [Suspect]
     Active Substance: QUETIAPINE
     Dosage: UNK (DOWN-TITRATION)
     Route: 065
  33. QUETIAPINE [Suspect]
     Active Substance: QUETIAPINE
     Dosage: UNK (INCREASED TO A FULL DOSE ON DAY 14)
     Route: 065
  34. ARIPIPRAZOLE [Suspect]
     Active Substance: ARIPIPRAZOLE
     Indication: Schizophrenia
     Dosage: UNK (UP TO 30 MG/D)
     Route: 065
     Dates: start: 201710, end: 201710
  35. LITHIUM [Suspect]
     Active Substance: LITHIUM
     Indication: Schizophrenia
     Dosage: UNK (UP TO 210 MG/D)
     Route: 065
     Dates: start: 201810
  36. LITHIUM [Suspect]
     Active Substance: LITHIUM
     Dosage: 168 MILLIGRAM PER DAY
     Route: 065
  37. TRIMEPRAZINE [Suspect]
     Active Substance: TRIMEPRAZINE
     Indication: Anxiety
     Dosage: UNK (PERIODIC)
     Route: 065
  38. TRIMEPRAZINE [Suspect]
     Active Substance: TRIMEPRAZINE
     Indication: Intentional self-injury
  39. TRIMEPRAZINE [Suspect]
     Active Substance: TRIMEPRAZINE
     Indication: Agitation
  40. LEVOMEPROMAZINE [Suspect]
     Active Substance: LEVOMEPROMAZINE
     Indication: Anxiety
     Dosage: UNK (PERIODIC)
     Route: 065
  41. LEVOMEPROMAZINE [Suspect]
     Active Substance: LEVOMEPROMAZINE
     Indication: Intentional self-injury
  42. LEVOMEPROMAZINE [Suspect]
     Active Substance: LEVOMEPROMAZINE
     Indication: Agitation
  43. CLOZAPINE [Suspect]
     Active Substance: CLOZAPINE
     Indication: Schizophrenia
     Dosage: UNK (UP TO 700 MG/D )
     Route: 065
     Dates: start: 2015, end: 2018
  44. AMPHETAMINE [Concomitant]
     Active Substance: AMPHETAMINE
     Indication: Product used for unknown indication
     Dosage: UNK
     Route: 065

REACTIONS (3)
  - Extrapyramidal disorder [Recovered/Resolved]
  - Therapy partial responder [Unknown]
  - Off label use [Unknown]

NARRATIVE: CASE EVENT DATE: 20150101
